FAERS Safety Report 25329954 (Version 1)
Quarter: 2025Q2

REPORT INFORMATION
  Report Type: Other
  Country: IT (occurrence: IT)
  Receive Date: 20250519
  Receipt Date: 20250519
  Transmission Date: 20250716
  Serious: Yes (Other)
  Sender: ANI
  Company Number: IT-ANIPHARMA-022819

PATIENT
  Age: 79 Year
  Sex: Female

DRUGS (1)
  1. CEFUROXIME [Suspect]
     Active Substance: CEFUROXIME
     Indication: Prophylaxis

REACTIONS (2)
  - Toxicity to various agents [Unknown]
  - Ocular toxicity [Not Recovered/Not Resolved]
